FAERS Safety Report 12146439 (Version 1)
Quarter: 2016Q1

REPORT INFORMATION
  Report Type: Report from Study
  Country: US (occurrence: US)
  Receive Date: 20160304
  Receipt Date: 20160304
  Transmission Date: 20160526
  Serious: Yes (Other)
  Sender: FDA-Public Use
  Company Number: US-ABBVIE-16K-163-1568605-00

PATIENT
  Age: 59 Year
  Sex: Female
  Weight: 65.83 kg

DRUGS (2)
  1. HUMIRA [Suspect]
     Active Substance: ADALIMUMAB
     Indication: PSORIASIS
     Route: 058
     Dates: start: 20160206
  2. HUMIRA [Suspect]
     Active Substance: ADALIMUMAB
     Indication: ANKYLOSING SPONDYLITIS

REACTIONS (6)
  - Drug dose omission [Recovered/Resolved]
  - Injection site pain [Recovered/Resolved]
  - Device issue [Recovered/Resolved]
  - Incision site haemorrhage [Recovered/Resolved]
  - Psoriasis [Not Recovered/Not Resolved]
  - Hormone therapy [Recovered/Resolved]

NARRATIVE: CASE EVENT DATE: 201602
